FAERS Safety Report 7576513-0 (Version None)
Quarter: 2011Q2

REPORT INFORMATION
  Report Type: 
  Country: None (occurrence: None)
  Receive Date: 20110628
  Receipt Date: 20080904
  Transmission Date: 20111010
  Serious: Yes (Hospitalization, Other)
  Sender: FDA-Public Use
  Company Number: US-BAYER-200826670NA

PATIENT
  Age: 64 Year
  Sex: Male
  Weight: 70.295 kg

DRUGS (17)
  1. NITROGLYCERIN [Concomitant]
     Dosage: UNK
     Route: 061
     Dates: start: 20050717
  2. LOPRESSOR [Concomitant]
     Dosage: UNK
     Dates: start: 20050716
  3. NITROGLYCERIN [Concomitant]
     Dosage: UNK
     Route: 042
     Dates: start: 20050717
  4. HEPARIN [Concomitant]
     Dosage: UNK
     Route: 042
     Dates: start: 20050717
  5. FENTANYL [Concomitant]
     Route: 042
  6. ALBUMIN (HUMAN) [Concomitant]
     Route: 042
  7. TRASYLOL [Suspect]
     Indication: CORONARY ARTERY BYPASS
     Dosage: LOADING DOSE - FULL DOSE PROTOCOL THEN 50CC/HR
     Route: 042
     Dates: start: 20050719, end: 20050719
  8. CELEBREX [Concomitant]
     Dosage: 200
     Route: 048
  9. VASOTEC [Concomitant]
     Dosage: 10MG
     Route: 048
     Dates: start: 20050718
  10. PROTAMINE SULFATE [Concomitant]
     Route: 042
  11. AMICAR [Concomitant]
     Route: 042
  12. MANNITOL [Concomitant]
     Route: 042
  13. ACETYLSALICYLIC ACID SRT [Concomitant]
     Dosage: 325
     Route: 048
  14. INTEGRILIN [Concomitant]
     Dosage: UNK
     Route: 042
     Dates: start: 20050717
  15. ISOVUE-128 [Concomitant]
     Indication: CATHETERISATION CARDIAC
     Dosage: 340 CC
     Dates: start: 20050720
  16. VANCOMYCIN [Concomitant]
     Dosage: UNK
     Dates: start: 20050718
  17. BENADRYL [Concomitant]
     Dosage: 50MG
     Route: 042

REACTIONS (13)
  - CORONARY ARTERY INSUFFICIENCY [None]
  - PROCEDURAL HYPERTENSION [None]
  - INJURY [None]
  - PAIN [None]
  - ELECTROCARDIOGRAM ST SEGMENT ELEVATION [None]
  - BUNDLE BRANCH BLOCK RIGHT [None]
  - ANXIETY [None]
  - DEPRESSION [None]
  - MYOCARDIAL INFARCTION [None]
  - CARDIAC DISORDER [None]
  - ILL-DEFINED DISORDER [None]
  - EMOTIONAL DISTRESS [None]
  - UNEVALUABLE EVENT [None]
